FAERS Safety Report 25640298 (Version 2)
Quarter: 2025Q3

REPORT INFORMATION
  Report Type: Spontaneous
  Country: EU (occurrence: EU)
  Receive Date: 20250804
  Receipt Date: 20250909
  Transmission Date: 20251021
  Serious: Yes (Other)
  Sender: NOVO NORDISK
  Company Number: EU-NOVOPROD-1491158

PATIENT
  Sex: Female

DRUGS (1)
  1. WEGOVY [Suspect]
     Active Substance: SEMAGLUTIDE
     Indication: Product used for unknown indication
     Dosage: 0.25 MG, QW
     Dates: start: 20250710

REACTIONS (5)
  - Abnormal loss of weight [Unknown]
  - Early satiety [Unknown]
  - Appetite disorder [Unknown]
  - Intestinal transit time decreased [Unknown]
  - Feeding disorder [Unknown]
